FAERS Safety Report 16697765 (Version 1)
Quarter: 2019Q3

REPORT INFORMATION
  Report Type: Spontaneous
  Country: US (occurrence: US)
  Receive Date: 20190813
  Receipt Date: 20190813
  Transmission Date: 20191004
  Serious: Yes (Hospitalization)
  Sender: FDA-Public Use
  Company Number: US-IPSEN BIOPHARMACEUTICALS, INC.-2019-14118

PATIENT
  Age: 48 Year
  Sex: Female

DRUGS (5)
  1. RESTYLANE [Suspect]
     Active Substance: HYALURONIC ACID
     Indication: SKIN WRINKLING
  2. DYSPORT [Suspect]
     Active Substance: ABOBOTULINUMTOXINA
     Indication: OFF LABEL USE
  3. DYSPORT [Suspect]
     Active Substance: ABOBOTULINUMTOXINA
     Indication: SKIN WRINKLING
     Dosage: 55 IU (FOREHEAD-45 IU, CROW^S FEET-10 IU)
     Route: 065
     Dates: start: 20190424, end: 20190424
  4. DYSPORT [Suspect]
     Active Substance: ABOBOTULINUMTOXINA
     Indication: SKIN WRINKLING
  5. RESTYLANE [Suspect]
     Active Substance: HYALURONIC ACID
     Indication: SKIN WRINKLING
     Dates: start: 20190424

REACTIONS (11)
  - Injection site induration [Unknown]
  - Pyrexia [Unknown]
  - Heart rate irregular [Unknown]
  - Injection site erythema [Unknown]
  - Anaemia [Unknown]
  - Cough [Unknown]
  - Swelling face [Recovered/Resolved]
  - Injection site swelling [Unknown]
  - Off label use [Unknown]
  - Respiratory disorder [Unknown]
  - Swelling face [Unknown]

NARRATIVE: CASE EVENT DATE: 20190424
